FAERS Safety Report 7332289-3 (Version None)
Quarter: 2011Q1

REPORT INFORMATION
  Report Type: 
  Country: None (occurrence: None)
  Receive Date: 20110304
  Receipt Date: 20110224
  Transmission Date: 20110831
  Serious: Yes (Hospitalization)
  Sender: FDA-Public Use
  Company Number: BR-ROCHE-760754

PATIENT
  Sex: Female
  Weight: 87.8 kg

DRUGS (5)
  1. BEVACIZUMAB [Suspect]
     Indication: RENAL CANCER
     Dosage: FREQUENCY : EVERY OTHER WEEK
     Route: 042
     Dates: start: 20090908
  2. LOSARTAN POTASSIUM [Concomitant]
     Dates: start: 20100909
  3. ATENOLOL [Concomitant]
     Dates: start: 19800101
  4. LIPANOR [Concomitant]
     Dates: start: 20100923
  5. INTERFERON ALFA [Suspect]
     Indication: RENAL CANCER
     Dosage: DOSE : 6MU
     Route: 058
     Dates: start: 20090908

REACTIONS (2)
  - DIARRHOEA [None]
  - RENAL FAILURE [None]
